FAERS Safety Report 18698399 (Version 1)
Quarter: 2021Q1

REPORT INFORMATION
  Report Type: Spontaneous
  Country: US (occurrence: US)
  Receive Date: 20210105
  Receipt Date: 20210105
  Transmission Date: 20210419
  Serious: Yes (Death, Other)
  Sender: FDA-Public Use
  Company Number: US-GLENMARK PHARMACEUTICALS-2020GMK051424

PATIENT
  Age: 68 Year
  Sex: Male

DRUGS (1)
  1. LIDOCAINE. [Suspect]
     Active Substance: LIDOCAINE
     Indication: TRIGEMINAL NEURALGIA
     Dosage: UNK
     Route: 051

REACTIONS (2)
  - Incorrect dose administered [Fatal]
  - Cardiac arrest [Fatal]
